FAERS Safety Report 18001970 (Version 1)
Quarter: 2020Q3

REPORT INFORMATION
  Report Type: Spontaneous
  Country: US (occurrence: US)
  Receive Date: 20200709
  Receipt Date: 20200709
  Transmission Date: 20201103
  Serious: No
  Sender: FDA-Public Use
  Company Number: US-US-PROVELL PHARMACEUTICALS LLC-9173499

PATIENT
  Age: 95 Year
  Sex: Female
  Weight: 61 kg

DRUGS (1)
  1. EUTHYROX [Suspect]
     Active Substance: LEVOTHYROXINE SODIUM
     Indication: THYROID DISORDER
     Dates: start: 20200615, end: 2020

REACTIONS (5)
  - Insomnia [Unknown]
  - Headache [Unknown]
  - Weight increased [Unknown]
  - Rash [Unknown]
  - Increased appetite [Unknown]

NARRATIVE: CASE EVENT DATE: 202006
